FAERS Safety Report 4862924-0 (Version None)
Quarter: 2005Q4

REPORT INFORMATION
  Report Type: 
  Country: None (occurrence: None)
  Receive Date: 20051219
  Receipt Date: 20051206
  Transmission Date: 20060501
  Serious: Yes (Other)
  Sender: FDA-Public Use
  Company Number: 2005147262

PATIENT
  Age: 46 Year
  Sex: Male

DRUGS (1)
  1. NARDIL [Suspect]
     Indication: DEPRESSION
     Dosage: 30 MG (15 MG, 1 IN 1 D), ORAL
     Route: 048
     Dates: start: 19780101

REACTIONS (7)
  - CERVICAL SPINAL STENOSIS [None]
  - CONSTIPATION [None]
  - DRUG EFFECT DECREASED [None]
  - HYPERCHLORHYDRIA [None]
  - PHARMACEUTICAL PRODUCT COMPLAINT [None]
  - STOMACH DISCOMFORT [None]
  - WEIGHT INCREASED [None]
